FAERS Safety Report 17537662 (Version 3)
Quarter: 2020Q2

REPORT INFORMATION
  Report Type: Spontaneous
  Country: DE (occurrence: DE)
  Receive Date: 20200313
  Receipt Date: 20200602
  Transmission Date: 20200713
  Serious: Yes (Death, Congenital Anomaly, Other)
  Sender: FDA-Public Use
  Company Number: NVSC2020DE066335

PATIENT

DRUGS (2)
  1. VALSARTAN. [Suspect]
     Active Substance: VALSARTAN
     Route: 064
  2. VALSARTAN. [Suspect]
     Active Substance: VALSARTAN
     Indication: FOETAL EXPOSURE DURING PREGNANCY
     Dosage: MATERNAL DOSE: UNK
     Route: 064

REACTIONS (8)
  - Pulmonary hypoplasia [Fatal]
  - Foetal exposure during pregnancy [Fatal]
  - Premature baby [Unknown]
  - Foetal disorder [Fatal]
  - Congenital renal disorder [Fatal]
  - Oligohydramnios [Fatal]
  - Cranial sutures widening [Fatal]
  - Renal impairment neonatal [Unknown]
